FAERS Safety Report 23780301 (Version 2)
Quarter: 2024Q2

REPORT INFORMATION
  Report Type: Spontaneous
  Country: JP (occurrence: JP)
  Receive Date: 20240424
  Receipt Date: 20240527
  Transmission Date: 20240716
  Serious: Yes (Death, Other)
  Sender: FDA-Public Use
  Company Number: JP-JNJFOC-20240458766

PATIENT
  Age: 37 Year
  Sex: Female

DRUGS (1)
  1. EPOPROSTENOL [Suspect]
     Active Substance: EPOPROSTENOL
     Indication: Pulmonary hypertension
     Dosage: DOSE UNKNOWN
     Route: 041
     Dates: start: 2022

REACTIONS (3)
  - Respiratory failure [Fatal]
  - Airway compression [Fatal]
  - Graves^ disease [Unknown]

NARRATIVE: CASE EVENT DATE: 20220101
